FAERS Safety Report 26160207 (Version 1)
Quarter: 2025Q4

REPORT INFORMATION
  Report Type: Report from Study
  Country: US (occurrence: US)
  Receive Date: 20251216
  Receipt Date: 20251216
  Transmission Date: 20260118
  Serious: Yes (Hospitalization)
  Sender: RECORDATI
  Company Number: US-ORPHANEU-2025008995

PATIENT
  Age: 31 Year
  Sex: Male
  Weight: 77.098 kg

DRUGS (9)
  1. ISTURISA [Suspect]
     Active Substance: OSILODROSTAT PHOSPHATE
     Indication: Cushing^s syndrome
     Dosage: 1 MG, BID
     Route: 048
  2. ISTURISA [Suspect]
     Active Substance: OSILODROSTAT PHOSPHATE
     Indication: Ectopic ACTH syndrome
     Dosage: 3 MG, BID (1 MG TABLET)
     Route: 048
     Dates: end: 20250813
  3. ISTURISA [Suspect]
     Active Substance: OSILODROSTAT PHOSPHATE
     Dosage: 5 MG, BID AND 4 MG, BID (1 MG TABLET)
     Route: 048
     Dates: start: 202508, end: 20250822
  4. ISTURISA [Suspect]
     Active Substance: OSILODROSTAT PHOSPHATE
     Dosage: 5 MG, BID (1 MG TABLET)
     Route: 048
     Dates: start: 202508, end: 20250826
  5. ISTURISA [Suspect]
     Active Substance: OSILODROSTAT PHOSPHATE
     Dosage: 4 MG, BID (1 MG TABLET)
     Route: 048
     Dates: start: 202508, end: 202511
  6. ISTURISA [Suspect]
     Active Substance: OSILODROSTAT PHOSPHATE
     Dosage: 3 MG, BID (LOWER DOSE)
     Route: 048
     Dates: start: 202511, end: 2025
  7. ISTURISA [Suspect]
     Active Substance: OSILODROSTAT PHOSPHATE
     Dosage: 11 MG, QD (1 MG TABLET)
     Route: 048
     Dates: start: 2025, end: 20251204
  8. ISTURISA [Suspect]
     Active Substance: OSILODROSTAT PHOSPHATE
     Dosage: 4 MG, BID (1 MG TABLET)
     Route: 048
     Dates: start: 202512
  9. ALLEGRA ALLERGY [Concomitant]
     Active Substance: FEXOFENADINE HYDROCHLORIDE
     Indication: Product used for unknown indication
     Dosage: 180 MG, QD (AS NEEDED), TABLET
     Route: 048
     Dates: start: 20250102

REACTIONS (2)
  - Post procedural complication [Not Recovered/Not Resolved]
  - Off label use [Recovered/Resolved]

NARRATIVE: CASE EVENT DATE: 20251101
